FAERS Safety Report 7360052-6 (Version None)
Quarter: 2011Q1

REPORT INFORMATION
  Report Type: 
  Country: None (occurrence: None)
  Receive Date: 20110317
  Receipt Date: 20100402
  Transmission Date: 20110831
  Serious: No
  Sender: FDA-Public Use
  Company Number: US-PFIZER INC-2010043044

PATIENT
  Sex: Male
  Weight: 62.585 kg

DRUGS (6)
  1. ANDROGEL [Concomitant]
     Dosage: UNK
  2. AMBIEN [Concomitant]
     Indication: INSOMNIA
     Dosage: 5 MG, UNK
  3. LIPITOR [Concomitant]
     Dosage: UNK
  4. NORVASC [Suspect]
     Indication: BLOOD PRESSURE
     Dosage: 5 MG, 1X/DAY
     Dates: start: 20100327
  5. ACETYLSALICYLIC ACID [Concomitant]
     Dosage: 81 MG
  6. IMIPRAMINE [Concomitant]
     Dosage: 25 MG TWICE DAILY

REACTIONS (3)
  - FEELING ABNORMAL [None]
  - DIZZINESS [None]
  - DRUG INEFFECTIVE [None]
